FAERS Safety Report 7493331-2 (Version None)
Quarter: 2011Q2

REPORT INFORMATION
  Report Type: 
  Country: None (occurrence: None)
  Receive Date: 20110520
  Receipt Date: 20110516
  Transmission Date: 20111010
  Serious: Yes (Hospitalization, Other)
  Sender: FDA-Public Use
  Company Number: US-PFIZER INC-2011044469

PATIENT
  Sex: Male

DRUGS (4)
  1. PROAIR HFA [Concomitant]
     Indication: HYPERSENSITIVITY
     Dosage: UNK
     Dates: start: 20000101
  2. KLONOPIN [Concomitant]
     Indication: ANXIETY
     Dosage: UNK
     Dates: start: 20020101
  3. CHANTIX [Suspect]
     Indication: SMOKING CESSATION THERAPY
     Dosage: 0.5MG/1MG
     Dates: start: 20080101, end: 20080301
  4. PROAIR HFA [Concomitant]
     Indication: RESPIRATORY DISORDER

REACTIONS (9)
  - PARANOIA [None]
  - ABNORMAL BEHAVIOUR [None]
  - MOOD SWINGS [None]
  - BIPOLAR DISORDER [None]
  - SUICIDAL IDEATION [None]
  - DEPRESSION [None]
  - PSYCHOTIC DISORDER [None]
  - AGGRESSION [None]
  - ANXIETY [None]
